FAERS Safety Report 15514746 (Version 2)
Quarter: 2019Q2

REPORT INFORMATION
  Report Type: Report from Study
  Country: US (occurrence: US)
  Receive Date: 20181016
  Receipt Date: 20190613
  Transmission Date: 20190711
  Serious: Yes (Hospitalization)
  Sender: FDA-Public Use
  Company Number: PHEH2018US042903

PATIENT
  Sex: Female

DRUGS (1)
  1. GLEEVEC [Suspect]
     Active Substance: IMATINIB MESYLATE
     Indication: PRODUCT USED FOR UNKNOWN INDICATION
     Dosage: UNK
     Route: 065

REACTIONS (8)
  - Infection [Unknown]
  - Feeling abnormal [Unknown]
  - Asthenia [Unknown]
  - Pulmonary embolism [Unknown]
  - Malaise [Unknown]
  - Leukaemia [Unknown]
  - Headache [Unknown]
  - Drug interaction [Unknown]
